FAERS Safety Report 16554740 (Version 2)
Quarter: 2020Q1

REPORT INFORMATION
  Report Type: Report from Study
  Country: US (occurrence: US)
  Receive Date: 20190710
  Receipt Date: 20200323
  Transmission Date: 20200409
  Serious: Yes (Hospitalization)
  Sender: FDA-Public Use
  Company Number: US-ACTELION-A-US2019-190425

PATIENT
  Sex: Female
  Weight: 79.82 kg

DRUGS (4)
  1. UPTRAVI [Suspect]
     Active Substance: SELEXIPAG
     Dosage: 1600 MCG, BID
     Route: 048
  2. UPTRAVI [Suspect]
     Active Substance: SELEXIPAG
     Indication: PULMONARY HYPERTENSION
     Dosage: 1000 MCG, BID
     Route: 048
  3. XARELTO [Concomitant]
     Active Substance: RIVAROXABAN
  4. UPTRAVI [Suspect]
     Active Substance: SELEXIPAG
     Dosage: 1200 MCG, BID
     Route: 048

REACTIONS (24)
  - Fatigue [Unknown]
  - Abdominal pain upper [Unknown]
  - Loss of consciousness [Unknown]
  - Syncope [Unknown]
  - Condition aggravated [Unknown]
  - Pain in extremity [Unknown]
  - Therapy non-responder [Unknown]
  - Feeling hot [Unknown]
  - Dizziness [Unknown]
  - Hypotension [Unknown]
  - Dyspnoea [Unknown]
  - Blood potassium decreased [Unknown]
  - Weight decreased [Unknown]
  - Faeces soft [Unknown]
  - Pulmonary arterial pressure [Unknown]
  - Headache [Unknown]
  - Varicose vein [Unknown]
  - Dehydration [Unknown]
  - Electrocardiogram ST segment [Unknown]
  - Frequent bowel movements [Unknown]
  - Troponin [Unknown]
  - Blood magnesium decreased [Unknown]
  - Pain in jaw [Unknown]
  - Diarrhoea [Unknown]
